FAERS Safety Report 25159913 (Version 1)
Quarter: 2025Q2

REPORT INFORMATION
  Report Type: Spontaneous
  Country: US (occurrence: US)
  Receive Date: 20250404
  Receipt Date: 20250404
  Transmission Date: 20250717
  Serious: No
  Sender: PADAGIS
  Company Number: US-PADAGIS-2025PAD00385

PATIENT

DRUGS (1)
  1. TESTOSTERONE CYPIONATE [Suspect]
     Active Substance: TESTOSTERONE CYPIONATE
     Indication: Blood testosterone decreased
     Dosage: PATIENT USING THE PRODUCT FROM 2-3MONTHS. PATIENT TAKING 50MG PER WEEK, DIVIDED DOSES
     Route: 065

REACTIONS (1)
  - Polycythaemia [Unknown]
